FAERS Safety Report 14131511 (Version 3)
Quarter: 2018Q1

REPORT INFORMATION
  Report Type: Report from Study
  Country: US (occurrence: US)
  Receive Date: 20171026
  Receipt Date: 20180125
  Transmission Date: 20180508
  Serious: No
  Sender: FDA-Public Use
  Company Number: US-AMGEN-USASL2017130738

PATIENT
  Age: 60 Year
  Sex: Male

DRUGS (1)
  1. REPATHA [Suspect]
     Active Substance: EVOLOCUMAB
     Indication: BLOOD CHOLESTEROL INCREASED
     Dosage: 140 MG, Q2WK
     Route: 065
     Dates: end: 201708

REACTIONS (6)
  - Arthralgia [Not Recovered/Not Resolved]
  - Gait disturbance [Unknown]
  - Muscle spasms [Not Recovered/Not Resolved]
  - Limb discomfort [Recovered/Resolved]
  - Back pain [Unknown]
  - Rhinorrhoea [Unknown]
